FAERS Safety Report 5083002-4 (Version None)
Quarter: 2006Q3

REPORT INFORMATION
  Report Type: 
  Country: None (occurrence: None)
  Receive Date: 20060720
  Receipt Date: 20060406
  Transmission Date: 20061208
  Serious: Yes (Other)
  Sender: FDA-Public Use
  Company Number: 2006048879

PATIENT
  Age: 57 Year
  Sex: Male
  Weight: 99.7913 kg

DRUGS (8)
  1. CELEBREX [Suspect]
     Indication: INFLAMMATION
     Dosage: 400 MG (200 MG,2 IN 1 D)
     Dates: start: 20060307
  2. PLAVIX [Concomitant]
  3. IMDUR [Concomitant]
  4. GLUCOTROL [Concomitant]
  5. METFORMIN HCL [Concomitant]
  6. TOPROL-XL [Concomitant]
  7. PREVACID [Concomitant]
  8. ASPIRIN [Concomitant]

REACTIONS (2)
  - BLOOD GLUCOSE INCREASED [None]
  - VOMITING [None]
